FAERS Safety Report 6241367-1 (Version None)
Quarter: 2009Q2

REPORT INFORMATION
  Report Type: 
  Country: None (occurrence: None)
  Receive Date: 20090619
  Receipt Date: 20090619
  Transmission Date: 20091009
  Serious: No
  Sender: FDA-Public Use
  Company Number: None

PATIENT
  Age: 54 Year
  Sex: Female
  Weight: 92.9874 kg

DRUGS (1)
  1. ZICAM COLD REMEDY NASAL GEL NO INFORMATION [Suspect]
     Dosage: 1-2 SPRAYS 3 TIMES A DAY NASAL
     Route: 045
     Dates: start: 20090329, end: 20090410

REACTIONS (1)
  - ANOSMIA [None]
